FAERS Safety Report 4945353-0 (Version None)
Quarter: 2006Q1

REPORT INFORMATION
  Report Type: 
  Country: None (occurrence: None)
  Receive Date: 20060315
  Receipt Date: 20060315
  Transmission Date: 20060701
  Serious: Yes (Other)
  Sender: FDA-Public Use
  Company Number: None

PATIENT
  Sex: Female
  Weight: 56.6996 kg

DRUGS (2)
  1. KADIAN [Suspect]
     Indication: BACK PAIN
     Dosage: 100MG ONE PO TID
     Route: 048
     Dates: start: 20050711, end: 20050811
  2. DURAGESIC-100 [Suspect]
     Indication: BACK PAIN
     Dosage: 100 MCG ONE Q 48 HOURS

REACTIONS (4)
  - DRUG INEFFECTIVE [None]
  - DYSPNOEA [None]
  - RASH [None]
  - WHEEZING [None]
